FAERS Safety Report 9205885 (Version 1)
Quarter: 2013Q2

REPORT INFORMATION
  Report Type: Spontaneous
  Country: US (occurrence: None)
  Receive Date: 20130401
  Receipt Date: 20130401
  Transmission Date: 20140414
  Serious: Yes (Death, Other)
  Sender: FDA-Public Use
  Company Number: TPA2013A02416

PATIENT
  Age: 67 Year
  Sex: Male
  Weight: 90.72 kg

DRUGS (6)
  1. ACTOS (PIOGLITAZONE HYDROCHLORIDE) [Suspect]
     Indication: TYPE 2 DIABETES MELLITUS
     Dates: start: 20070607, end: 102010
  2. AVANDIA (ROSIGLITAZONE MALEATE) [Concomitant]
  3. METFORMIN [Concomitant]
  4. DIABETA (GLIBENCLAMIDE) [Concomitant]
  5. JANUVIA (SITAGLIPTIN PHOSPHATE) [Concomitant]
  6. BYETTA (EXENATIDE) [Concomitant]

REACTIONS (1)
  - Bladder cancer [None]
